FAERS Safety Report 5813134-1 (Version None)
Quarter: 2008Q3

REPORT INFORMATION
  Report Type: 
  Country: None (occurrence: None)
  Receive Date: 20080717
  Receipt Date: 20080214
  Transmission Date: 20090109
  Serious: No
  Sender: FDA-Public Use
  Company Number: A0709524A

PATIENT
  Age: 58 Year
  Sex: Male

DRUGS (1)
  1. NICORETTE [Suspect]

REACTIONS (3)
  - INTENTIONAL DRUG MISUSE [None]
  - JOINT STIFFNESS [None]
  - NAUSEA [None]
